FAERS Safety Report 6161455-8 (Version None)
Quarter: 2009Q2

REPORT INFORMATION
  Report Type: 
  Country: None (occurrence: None)
  Receive Date: 20090421
  Receipt Date: 20090417
  Transmission Date: 20091009
  Serious: No
  Sender: FDA-Public Use
  Company Number: US-B.I. PHARMACEUTICALS,INC./RIDGEFIELD-2008-BP-16875BP

PATIENT
  Sex: Female

DRUGS (4)
  1. SPIRIVA [Suspect]
     Indication: CHRONIC OBSTRUCTIVE PULMONARY DISEASE
     Dosage: 18MCG
     Route: 055
     Dates: start: 20080401
  2. SPIRIVA [Suspect]
     Indication: EMPHYSEMA
  3. ALENDRONATE [Suspect]
     Indication: BONE DENSITY DECREASED
     Dosage: 10MG
  4. TYLENOL (CAPLET) [Concomitant]
     Indication: ARTHRITIS

REACTIONS (1)
  - DRY MOUTH [None]
